FAERS Safety Report 7130518-2 (Version None)
Quarter: 2010Q4

REPORT INFORMATION
  Report Type: 
  Country: None (occurrence: None)
  Receive Date: 20101101
  Receipt Date: 20100805
  Transmission Date: 20110411
  Serious: No
  Sender: FDA-Public Use
  Company Number: 2010-10627

PATIENT
  Age: 52 Year
  Sex: Female
  Weight: 40.8 kg

DRUGS (1)
  1. RAPAFLO [Suspect]
     Indication: URINARY RETENTION
     Dosage: 8 MG, DAILY, ORAL
     Route: 048
     Dates: start: 20100804, end: 20100804

REACTIONS (4)
  - DIARRHOEA [None]
  - FEELING HOT [None]
  - HOT FLUSH [None]
  - NAUSEA [None]
